FAERS Safety Report 4306663-3 (Version None)
Quarter: 2004Q1

REPORT INFORMATION
  Report Type: 
  Country: None (occurrence: None)
  Receive Date: 20040225
  Receipt Date: 20031020
  Transmission Date: 20041129
  Serious: No
  Sender: FDA-Public Use
  Company Number: US-BRISTOL-MYERS SQUIBB COMPANY-12437612

PATIENT
  Sex: Female

DRUGS (1)
  1. EXCEDRIN (MIGRAINE) [Suspect]
     Dates: start: 20030101, end: 20030101

REACTIONS (1)
  - DRUG EFFECT DECREASED [None]
